FAERS Safety Report 10716002 (Version 3)
Quarter: 2016Q1

REPORT INFORMATION
  Report Type: Spontaneous
  Country: US (occurrence: US)
  Receive Date: 20150116
  Receipt Date: 20160113
  Transmission Date: 20160525
  Serious: No
  Sender: FDA-Public Use
  Company Number: US-PFIZER INC-2015018025

PATIENT
  Age: 53 Year
  Sex: Female

DRUGS (1)
  1. LYRICA [Suspect]
     Active Substance: PREGABALIN
     Indication: FIBROMYALGIA
     Dosage: 100 MG, 2X/DAY

REACTIONS (4)
  - Abdominal discomfort [Unknown]
  - Burning sensation [Unknown]
  - Tremor [Recovered/Resolved]
  - Withdrawal syndrome [Recovered/Resolved]
